FAERS Safety Report 14524437 (Version 3)
Quarter: 2019Q1

REPORT INFORMATION
  Report Type: Spontaneous
  Country: US (occurrence: US)
  Receive Date: 20180213
  Receipt Date: 20190211
  Transmission Date: 20190417
  Serious: No
  Sender: FDA-Public Use
  Company Number: US-PFIZER INC-2017176565

PATIENT
  Age: 14 Year
  Sex: Female
  Weight: 43 kg

DRUGS (2)
  1. GENOTROPIN [Suspect]
     Active Substance: SOMATROPIN
     Indication: GROWTH HORMONE DEFICIENCY
     Dosage: 2.4 MG DAILY (0.37 MG/KG/WK)
     Dates: start: 20120323
  2. GENOTROPIN [Suspect]
     Active Substance: SOMATROPIN
     Dosage: 2.4 MG, DAILY
     Dates: start: 20140430

REACTIONS (10)
  - Sleep disorder [Unknown]
  - Thyroxine free increased [Unknown]
  - Headache [Not Recovered/Not Resolved]
  - Bone density decreased [Unknown]
  - Insulin-like growth factor decreased [Unknown]
  - Blood thyroid stimulating hormone decreased [Unknown]
  - Migraine [Unknown]
  - Product dose omission [Unknown]
  - Device issue [Unknown]
  - Vitamin D decreased [Unknown]
